FAERS Safety Report 25531488 (Version 1)
Quarter: 2025Q3

REPORT INFORMATION
  Report Type: Report from Study
  Country: US (occurrence: US)
  Receive Date: 20250708
  Receipt Date: 20250708
  Transmission Date: 20251021
  Serious: No
  Sender: MALLINCKRODT
  Company Number: US-MALLINCKRODT-MNK202503646

PATIENT
  Sex: Female
  Weight: 200 kg

DRUGS (3)
  1. CORTICOTROPIN [Suspect]
     Active Substance: CORTICOTROPIN
     Indication: Punctate keratitis
  2. HYDROXYCHLOROQUINE DIPHOSPHATE [Suspect]
     Active Substance: HYDROXYCHLOROQUINE DIPHOSPHATE
     Indication: Contusion
  3. SOLU-MEDROL [Concomitant]
     Active Substance: METHYLPREDNISOLONE SODIUM SUCCINATE

REACTIONS (8)
  - Contusion [Unknown]
  - Somnolence [Unknown]
  - Arthralgia [Unknown]
  - Pain of skin [Unknown]
  - Weight increased [Unknown]
  - Injection site bruising [Unknown]
  - Diarrhoea [Unknown]
  - Injection site pain [Unknown]
